FAERS Safety Report 7741928-4 (Version None)
Quarter: 2011Q3

REPORT INFORMATION
  Report Type: 
  Country: None (occurrence: None)
  Receive Date: 20110912
  Receipt Date: 20110831
  Transmission Date: 20111222
  Serious: No
  Sender: FDA-Public Use
  Company Number: US-JNJFOC-20110902915

PATIENT
  Sex: Male
  Weight: 88.45 kg

DRUGS (2)
  1. DURAGESIC-100 [Suspect]
     Route: 062
     Dates: start: 20110301, end: 20110101
  2. DURAGESIC-100 [Suspect]
     Indication: BACK PAIN
     Route: 062
     Dates: start: 20110101

REACTIONS (2)
  - THERAPEUTIC REACTION TIME DECREASED [None]
  - WRONG TECHNIQUE IN DRUG USAGE PROCESS [None]
